FAERS Safety Report 7801999-3 (Version None)
Quarter: 2011Q4

REPORT INFORMATION
  Report Type: 
  Country: None (occurrence: None)
  Receive Date: 20111007
  Receipt Date: 20111003
  Transmission Date: 20120403
  Serious: Yes (Other)
  Sender: FDA-Public Use
  Company Number: PHHY2010US63191

PATIENT
  Sex: Male

DRUGS (2)
  1. EXJADE [Suspect]
     Dosage: 1000 MG, QD
     Route: 048
  2. EXJADE [Suspect]
     Dosage: 2000 MG, QD
     Route: 048

REACTIONS (7)
  - TINNITUS [None]
  - DIZZINESS [None]
  - PYREXIA [None]
  - EAR DISORDER [None]
  - EAR PAIN [None]
  - CATARACT [None]
  - TOOTHACHE [None]
